FAERS Safety Report 4642454-1 (Version None)
Quarter: 2005Q2

REPORT INFORMATION
  Report Type: 
  Country: None (occurrence: None)
  Receive Date: 20050420
  Receipt Date: 20050420
  Transmission Date: 20051028
  Serious: Yes (Life-Threatening, Hospitalization)
  Sender: FDA-Public Use
  Company Number: None

PATIENT
  Sex: Male
  Weight: 72.5755 kg

DRUGS (2)
  1. INTERFERON ALFA-2B (INTRON A) (WITH USE OF REBETRON) [Suspect]
     Indication: HEPATITIS C
     Dosage: DOSE, 3X/WEEK  SUBCUTANEOUSLY
     Route: 058
     Dates: start: 19981001, end: 19990801
  2. EFFEXOR [Concomitant]

REACTIONS (10)
  - ARTHROPATHY [None]
  - DRUG INEFFECTIVE [None]
  - INTERVERTEBRAL DISC PROTRUSION [None]
  - IRRITABILITY [None]
  - LABORATORY TEST ABNORMAL [None]
  - MUSCLE DISORDER [None]
  - NEPHROLITHIASIS [None]
  - PSYCHOTIC DISORDER [None]
  - RHEUMATOID ARTHRITIS [None]
  - SUICIDAL IDEATION [None]
